FAERS Safety Report 8957228 (Version 2)
Quarter: 2013Q1

REPORT INFORMATION
  Report Type: Spontaneous
  Country: US (occurrence: US)
  Receive Date: 20121210
  Receipt Date: 20130220
  Transmission Date: 20140127
  Serious: Yes (Hospitalization, Other)
  Sender: FDA-Public Use
  Company Number: US-INCYTE CORPORATION-2012IN002530

PATIENT
  Sex: Female
  Weight: 66.22 kg

DRUGS (7)
  1. JAKAFI [Suspect]
     Indication: POLYCYTHAEMIA VERA
     Dosage: 20 MG, BID
     Route: 048
     Dates: start: 201208
  2. JAKAFI [Suspect]
     Indication: SPLENOMEGALY
     Dosage: 20 MG, QD
     Dates: start: 2012, end: 201210
  3. HYDREA [Concomitant]
  4. VICODIN [Concomitant]
     Indication: PAIN
  5. MOTRIN [Concomitant]
  6. FOLIC ACID [Concomitant]
  7. BABY ASPIRIN [Concomitant]

REACTIONS (2)
  - Abdominal pain [Unknown]
  - Pancytopenia [Recovering/Resolving]
